FAERS Safety Report 22080087 (Version 1)
Quarter: 2023Q1

REPORT INFORMATION
  Report Type: Spontaneous
  Country: US (occurrence: None)
  Receive Date: 20230309
  Receipt Date: 20230309
  Transmission Date: 20230418
  Serious: No
  Sender: FDA-Public Use
  Company Number: None

PATIENT
  Sex: 0

DRUGS (1)
  1. FLUOROMETHOLONE [Suspect]
     Active Substance: FLUOROMETHOLONE

REACTIONS (2)
  - Intraocular pressure increased [None]
  - Cataract [None]
